FAERS Safety Report 20364836 (Version 8)
Quarter: 2025Q1

REPORT INFORMATION
  Report Type: Report from Study
  Country: CA (occurrence: CA)
  Receive Date: 20220122
  Receipt Date: 20250107
  Transmission Date: 20250408
  Serious: Yes (Other)
  Sender: ROCHE
  Company Number: CA-ROCHE-3000981

PATIENT
  Age: 49 Year
  Sex: Female
  Weight: 108.6 kg

DRUGS (3)
  1. OCREVUS [Suspect]
     Active Substance: OCRELIZUMAB
     Indication: Relapsing-remitting multiple sclerosis
     Dosage: DOSE: 300 MG AT DAY 0 AND 14, THEN 600 MG EVERY 6 MONTH, 30MG/ML
     Route: 042
     Dates: start: 20190412
  2. OCREVUS [Suspect]
     Active Substance: OCRELIZUMAB
     Route: 042
  3. OCREVUS [Suspect]
     Active Substance: OCRELIZUMAB
     Route: 042
     Dates: start: 20190412

REACTIONS (10)
  - Cellulitis [Recovering/Resolving]
  - Herpes zoster [Not Recovered/Not Resolved]
  - Infusion related reaction [Recovered/Resolved]
  - Nasal congestion [Not Recovered/Not Resolved]
  - Tachycardia [Not Recovered/Not Resolved]
  - Infusion related reaction [Recovered/Resolved]
  - Infusion related reaction [Recovering/Resolving]
  - Headache [Recovered/Resolved]
  - Weight decreased [Unknown]
  - Sinus congestion [Not Recovered/Not Resolved]

NARRATIVE: CASE EVENT DATE: 20190412
